FAERS Safety Report 16909441 (Version 1)
Quarter: 2019Q4

REPORT INFORMATION
  Report Type: Spontaneous
  Country: CA (occurrence: CA)
  Receive Date: 20191011
  Receipt Date: 20191011
  Transmission Date: 20200122
  Serious: Yes (Other)
  Sender: FDA-Public Use
  Company Number: CA-PFIZER INC-2019431873

PATIENT
  Age: 4 Year
  Sex: Female
  Weight: 17 kg

DRUGS (11)
  1. ASPARAGINASE [Concomitant]
     Active Substance: ASPARAGINASE
     Dosage: UNK
  2. DEXAMETHASONE. [Concomitant]
     Active Substance: DEXAMETHASONE
     Dosage: UNK
  3. PREDNISONE. [Suspect]
     Active Substance: PREDNISONE
     Indication: LEUKAEMIA
     Dosage: 10 MG, 3X/DAY
     Route: 048
  4. METHOTREXATE. [Concomitant]
     Active Substance: METHOTREXATE
     Dosage: UNK
  5. PEG-L-ASPARAGINASE [Concomitant]
     Active Substance: PEGASPARGASE
     Dosage: UNK
  6. CYTARABINE. [Concomitant]
     Active Substance: CYTARABINE
     Dosage: UNK
     Route: 037
  7. VINCRISTINE SULFATE. [Concomitant]
     Active Substance: VINCRISTINE SULFATE
     Dosage: UNK
  8. DOXORUBICIN HCL [Suspect]
     Active Substance: DOXORUBICIN HYDROCHLORIDE
     Indication: LEUKAEMIA
     Dosage: UNK
     Route: 042
  9. HYDROCORTISONE. [Concomitant]
     Active Substance: HYDROCORTISONE
     Dosage: UNK
  10. MERCAPTOPURINE. [Concomitant]
     Active Substance: MERCAPTOPURINE
     Dosage: UNK
  11. METHYLPREDNISOLONE. [Concomitant]
     Active Substance: METHYLPREDNISOLONE
     Dosage: UNK

REACTIONS (2)
  - Ejection fraction decreased [Unknown]
  - Cardiotoxicity [Unknown]
